FAERS Safety Report 7489018-2 (Version None)
Quarter: 2011Q1

REPORT INFORMATION
  Report Type: 
  Country: None (occurrence: None)
  Receive Date: 20110316
  Receipt Date: 20101101
  Transmission Date: 20110831
  Serious: Yes (Hospitalization, Other)
  Sender: FDA-Public Use
  Company Number: 2010MB000049

PATIENT
  Age: 72 Year
  Sex: Male
  Weight: 62.7 kg

DRUGS (14)
  1. BLINDED [Suspect]
     Indication: PROPHYLAXIS
     Dosage: PO
     Route: 048
     Dates: start: 20100520
  2. WHOLE BRAIN RADIOTHERAPY [Suspect]
     Indication: PRODUCT USED FOR UNKNOWN INDICATION
     Dates: start: 20100518, end: 20100608
  3. DECADRON [Concomitant]
  4. MULTI-VITAMINS [Concomitant]
  5. FOLIC ACID [Concomitant]
  6. ACTIFED COLD + ALLERGY [Concomitant]
  7. VITAMIN B [Concomitant]
  8. INSULIN BOVINE [Concomitant]
  9. LIPITOR [Concomitant]
  10. LASIX [Suspect]
     Indication: PRODUCT USED FOR UNKNOWN INDICATION
     Dosage: 20 MG;QD;PO
     Route: 048
  11. KEFLEX [Suspect]
     Indication: PRODUCT USED FOR UNKNOWN INDICATION
     Dosage: 500 MG;BID;PO
     Route: 048
  12. REGULAR INSULIN [Concomitant]
  13. CITALOPRAM [Concomitant]
  14. KEPPRA [Concomitant]

REACTIONS (1)
  - CLOSTRIDIUM DIFFICILE COLITIS [None]
